FAERS Safety Report 9834224 (Version 1)
Quarter: 2014Q1

REPORT INFORMATION
  Report Type: Spontaneous
  Country: US (occurrence: US)
  Receive Date: 20140122
  Receipt Date: 20140122
  Transmission Date: 20141002
  Serious: Yes (Hospitalization)
  Sender: FDA-Public Use
  Company Number: US-ASTELLAS-2014US000605

PATIENT
  Age: 70 Year
  Sex: Male

DRUGS (6)
  1. TARCEVA [Suspect]
     Indication: LUNG NEOPLASM MALIGNANT
     Dosage: 100 MG, UID/QD
     Route: 048
     Dates: start: 20131218, end: 20140113
  2. CALCITROL [Concomitant]
     Indication: HYPOCALCAEMIA
     Dosage: 0.25 UG, UID/QD
     Route: 048
     Dates: start: 20131217
  3. METOPROLOL SUCCINATE [Concomitant]
     Indication: HYPERTENSION
     Dosage: 100 MG, UID/QD
     Route: 048
     Dates: start: 20131217
  4. ENALAPRIL MALEATE [Concomitant]
     Indication: HYPERTENSION
     Dosage: 20 MG, UID/QD
     Route: 048
     Dates: start: 20131217
  5. HCTZ [Concomitant]
     Indication: HYPERTENSION
     Dosage: 25 MG, UID/QD
     Route: 048
     Dates: start: 20131217
  6. XARELTO [Concomitant]
     Indication: THROMBOSIS
     Dosage: 100 MG, UID/QD
     Route: 048
     Dates: start: 20131217

REACTIONS (2)
  - Incorrect dose administered [Unknown]
  - Oedema peripheral [Not Recovered/Not Resolved]
